FAERS Safety Report 21173403 (Version 2)
Quarter: 2022Q3

REPORT INFORMATION
  Report Type: Report from Study
  Country: TW (occurrence: TW)
  Receive Date: 20220804
  Receipt Date: 20220812
  Transmission Date: 20221027
  Serious: Yes (Other)
  Sender: FDA-Public Use
  Company Number: TW-BAYER-2022A105448

PATIENT
  Age: 77 Year
  Sex: Female

DRUGS (5)
  1. ADEMPAS [Suspect]
     Active Substance: RIOCIGUAT
     Indication: Pulmonary hypertension
     Dosage: 2.0 MG, TID
     Route: 048
     Dates: start: 201606, end: 20220726
  2. ADEMPAS [Suspect]
     Active Substance: RIOCIGUAT
     Indication: Pulmonary hypertension
     Dosage: 2.0 MG, TID
     Route: 048
     Dates: start: 20220802
  3. XARELTO [Suspect]
     Active Substance: RIVAROXABAN
     Dosage: 1 DF, HS
     Route: 048
     Dates: end: 20220726
  4. CANRENOATE POTASSIUM [Concomitant]
     Active Substance: CANRENOATE POTASSIUM
     Dosage: 25 MG, QD
     Route: 048
     Dates: end: 20220726
  5. FLUTICASONE FUROATE\VILANTEROL TRIFENATATE [Concomitant]
     Active Substance: FLUTICASONE FUROATE\VILANTEROL TRIFENATATE
     Dosage: 1 DF, QD
     Route: 055

REACTIONS (2)
  - Choking [None]
  - Cough [Recovered/Resolved]

NARRATIVE: CASE EVENT DATE: 20220712
